FAERS Safety Report 6288941-4 (Version None)
Quarter: 2009Q3

REPORT INFORMATION
  Report Type: 
  Country: None (occurrence: None)
  Receive Date: 20090729
  Receipt Date: 20090717
  Transmission Date: 20100115
  Serious: Yes (Other)
  Sender: FDA-Public Use
  Company Number: GB-SANOFI-SYNTHELABO-A01200902193

PATIENT
  Sex: Male
  Weight: 87 kg

DRUGS (6)
  1. CANNABIS [Suspect]
     Indication: DRUG USE FOR UNKNOWN INDICATION
     Dosage: UNK
     Route: 065
  2. VALIUM [Suspect]
     Indication: DRUG USE FOR UNKNOWN INDICATION
     Dosage: UNK
     Route: 065
  3. ATENOLOL [Concomitant]
     Indication: PALPITATIONS
     Route: 048
     Dates: start: 20030201
  4. STILNOCT [Suspect]
     Indication: INSOMNIA
     Dosage: TOOK UP TO 100 MG
     Route: 048
     Dates: start: 20031201
  5. STILNOCT [Suspect]
     Route: 048
  6. CLOMIPRAMINE HCL [Concomitant]
     Indication: DEPRESSION
     Dosage: UNK
     Route: 048
     Dates: start: 20060901

REACTIONS (8)
  - CHRONIC FATIGUE SYNDROME [None]
  - DISSOCIATIVE DISORDER [None]
  - DRUG ABUSE [None]
  - DRUG PRESCRIBING ERROR [None]
  - INTENTIONAL OVERDOSE [None]
  - PHOTOPSIA [None]
  - POST VIRAL FATIGUE SYNDROME [None]
  - VERTIGO [None]
